FAERS Safety Report 5519067-2 (Version None)
Quarter: 2007Q4

REPORT INFORMATION
  Report Type: 
  Country: None (occurrence: None)
  Receive Date: 20071114
  Receipt Date: 20071114
  Transmission Date: 20080405
  Serious: No
  Sender: FDA-Public Use
  Company Number: None

PATIENT

DRUGS (4)
  1. ZEMPLAR [Suspect]
     Dosage: INJECTABLE
  2. FOSPHENYTOIN SODIUM [Suspect]
     Dosage: INJECTABLE
  3. PROCRIT [Suspect]
     Dosage: INJECTABLE
  4. OXYTOCIN [Suspect]
     Dosage: INJECTABLE

REACTIONS (1)
  - MEDICATION ERROR [None]
